FAERS Safety Report 14604557 (Version 1)
Quarter: 2018Q1

REPORT INFORMATION
  Report Type: Spontaneous
  Country: ZA (occurrence: ZA)
  Receive Date: 20180306
  Receipt Date: 20180306
  Transmission Date: 20180509
  Serious: Yes (Hospitalization)
  Sender: FDA-Public Use
  Company Number: ZA-PFIZER INC-2018092397

PATIENT
  Age: 66 Year
  Sex: Female

DRUGS (8)
  1. GLUCOPHAGE [Suspect]
     Active Substance: METFORMIN HYDROCHLORIDE
     Dosage: 1000 MG, UNK
  2. XALATAN [Suspect]
     Active Substance: LATANOPROST
     Dosage: 50 UG, UNK
  3. EPILIZINE [Suspect]
     Active Substance: VALPROATE SODIUM
     Dosage: 500 MG, UNK
  4. FEDALOC [Suspect]
     Active Substance: NIFEDIPINE
     Dosage: 60 MG, UNK
  5. TOPZOLE [Suspect]
     Active Substance: PANTOPRAZOLE SODIUM
     Dosage: 40 MG, UNK
  6. FERRIMED /00023548/ [Suspect]
     Active Substance: IRON POLYMALTOSE
     Dosage: UNK
  7. RISNIA [Suspect]
     Active Substance: RISPERIDONE
     Dosage: 1 MG, UNK
  8. LANTUS [Suspect]
     Active Substance: INSULIN GLARGINE
     Dosage: 100 IU, UNK

REACTIONS (1)
  - Bipolar disorder [Unknown]
